FAERS Safety Report 15036585 (Version 2)
Quarter: 2018Q2

REPORT INFORMATION
  Report Type: Other
  Country: GB (occurrence: GB)
  Receive Date: 20180620
  Receipt Date: 20180621
  Transmission Date: 20180711
  Serious: Yes (Hospitalization, Other)
  Sender: FDA-Public Use
  Company Number: GB-ASPEN-GLO2018GB005860

PATIENT
  Age: 62 Year
  Sex: Female
  Weight: 57 kg

DRUGS (21)
  1. AKYNZEO [Interacting]
     Active Substance: NETUPITANT\PALONOSETRON HYDROCHLORIDE
     Dosage: 1 DF, QD
     Route: 048
     Dates: start: 20180508, end: 20180508
  2. DEXAMETHASONE. [Interacting]
     Active Substance: DEXAMETHASONE
     Dosage: 8 MILLIGRAM, SINGLE ADMINISTERED BEFORE CHEMOTHERAPY
     Route: 048
     Dates: start: 20180306, end: 20180306
  3. AKYNZEO [Interacting]
     Active Substance: NETUPITANT\PALONOSETRON HYDROCHLORIDE
     Dosage: 1 DF, QD
     Route: 048
     Dates: start: 20180123, end: 20180123
  4. AKYNZEO [Interacting]
     Active Substance: NETUPITANT\PALONOSETRON HYDROCHLORIDE
     Dosage: 1 DF, QD
     Route: 048
     Dates: start: 20180213, end: 20180213
  5. LANSOPRAZOLE. [Concomitant]
     Active Substance: LANSOPRAZOLE
     Indication: PROPHYLAXIS AGAINST GASTROINTESTINAL ULCER
     Dosage: UNK
     Route: 065
  6. LERCANIDIPINE [Concomitant]
     Active Substance: LERCANIDIPINE
     Indication: HYPERTENSION
     Dosage: UNK
     Route: 065
  7. DEXAMETHASONE. [Interacting]
     Active Substance: DEXAMETHASONE
     Dosage: 8 MILLIGRAM, SINGLE ADMINISTERED BEFORE CHEMOTHERAPY
     Route: 048
     Dates: start: 20180213, end: 20180213
  8. FEC [Concomitant]
     Active Substance: CYCLOPHOSPHAMIDE\EPIRUBICIN HYDROCHLORIDE\FLUOROURACIL
     Indication: BREAST CANCER
     Dosage: UNK
     Route: 065
     Dates: start: 20180123, end: 20180508
  9. DIAZEPAM. [Concomitant]
     Active Substance: DIAZEPAM
     Indication: OVERDOSE
     Dosage: UNK
     Route: 065
     Dates: start: 20180517, end: 20180517
  10. DEXAMETHASONE. [Suspect]
     Active Substance: DEXAMETHASONE
     Indication: PROPHYLAXIS OF NAUSEA AND VOMITING
     Dosage: 4 MILLIGRAM, BID ADMINISTERED AFTER CHEMOTHERAPY
     Route: 048
     Dates: start: 20180509, end: 20180510
  11. DEXAMETHASONE. [Interacting]
     Active Substance: DEXAMETHASONE
     Dosage: 8 MILLIGRAM, SINGLE ADMINISTERED BEFORE CHEMOTHERAPY
     Route: 048
     Dates: start: 20180123, end: 20180123
  12. DEXAMETHASONE. [Interacting]
     Active Substance: DEXAMETHASONE
     Dosage: 8 MILLIGRAM, BID FOR 2 DAYS
     Route: 065
     Dates: start: 20180417, end: 20180418
  13. MIRTAZAPINE. [Concomitant]
     Active Substance: MIRTAZAPINE
     Indication: DEPRESSION
     Dosage: UNK
     Route: 065
  14. PARACETAMOL [Concomitant]
     Active Substance: ACETAMINOPHEN
     Indication: OVERDOSE
     Dosage: UNK
     Route: 065
     Dates: start: 20180517, end: 20180517
  15. DEXAMETHASONE. [Interacting]
     Active Substance: DEXAMETHASONE
     Dosage: 4 MILLIGRAM, BID ADMINISTERED AFTER CHEMOTHERAPY
     Route: 048
     Dates: start: 20180214, end: 20180215
  16. DEXAMETHASONE. [Interacting]
     Active Substance: DEXAMETHASONE
     Dosage: 8 MILLIGRAM, SINGLE ADMINISTERED BEFORE CHEMOTHERAPY
     Route: 048
     Dates: start: 20180508, end: 20180508
  17. DEXAMETHASONE. [Interacting]
     Active Substance: DEXAMETHASONE
     Dosage: 4 MILLIGRAM, BID ADMINISTERED AFTER CHEMOTHERAPY
     Route: 048
     Dates: start: 20180124, end: 20180125
  18. DOCETAXEL. [Concomitant]
     Active Substance: DOCETAXEL
     Indication: BREAST CANCER
     Dosage: UNK
     Route: 065
     Dates: start: 20180327, end: 20180417
  19. DEXAMETHASONE. [Interacting]
     Active Substance: DEXAMETHASONE
     Dosage: 8 MILLIGRAM, BID FOR 2 DAYS
     Route: 065
     Dates: start: 20180327, end: 20180328
  20. DEXAMETHASONE. [Interacting]
     Active Substance: DEXAMETHASONE
     Dosage: 4 MILLIGRAM, BID ADMINISTERED AFTER CHEMOTHERAPY
     Route: 048
     Dates: start: 20180307, end: 20180308
  21. AKYNZEO [Interacting]
     Active Substance: NETUPITANT\PALONOSETRON HYDROCHLORIDE
     Indication: PROPHYLAXIS OF NAUSEA AND VOMITING
     Dosage: 1 DF, QD
     Route: 048
     Dates: start: 20180306, end: 20180306

REACTIONS (7)
  - Disinhibition [Recovered/Resolved with Sequelae]
  - Drug interaction [Recovered/Resolved with Sequelae]
  - Suicide attempt [Recovered/Resolved with Sequelae]
  - Substance-induced psychotic disorder [Recovered/Resolved with Sequelae]
  - Abnormal behaviour [Recovered/Resolved with Sequelae]
  - Seizure [Recovered/Resolved]
  - Confusional state [Recovered/Resolved with Sequelae]

NARRATIVE: CASE EVENT DATE: 20180508
